FAERS Safety Report 8363720-2 (Version None)
Quarter: 2012Q2

REPORT INFORMATION
  Report Type: 
  Country: None (occurrence: None)
  Receive Date: 20120516
  Receipt Date: 20120514
  Transmission Date: 20120825
  Serious: Yes (Other)
  Sender: FDA-Public Use
  Company Number: US-PFIZER INC-2012105301

PATIENT
  Sex: Male

DRUGS (3)
  1. NAPROSYN [Suspect]
     Indication: BACK PAIN
  2. NAPROSYN [Suspect]
     Indication: ARTHRITIS
     Dosage: UNK
  3. LYRICA [Suspect]
     Indication: BACK DISORDER
     Dosage: UNK
     Route: 048
     Dates: start: 20080101

REACTIONS (5)
  - GLOMERULAR FILTRATION RATE DECREASED [None]
  - RENAL DISORDER [None]
  - BLOOD CREATININE INCREASED [None]
  - LACTOSE INTOLERANCE [None]
  - URINE ANALYSIS ABNORMAL [None]
